FAERS Safety Report 6069821-6 (Version None)
Quarter: 2009Q1

REPORT INFORMATION
  Report Type: 
  Country: None (occurrence: None)
  Receive Date: 20090209
  Receipt Date: 20090126
  Transmission Date: 20090719
  Serious: Yes (Hospitalization)
  Sender: FDA-Public Use
  Company Number: US-BIOGENIDEC-2008BI032896

PATIENT
  Age: 52 Year
  Sex: Male
  Weight: 108 kg

DRUGS (3)
  1. TYSABRI [Suspect]
     Indication: MULTIPLE SCLEROSIS
     Route: 042
     Dates: start: 20080513
  2. BACLOFEN [Concomitant]
     Indication: PAIN IN EXTREMITY
     Dates: start: 20080801
  3. HYDROCODONE BITARTRATE [Concomitant]
     Indication: PAIN IN EXTREMITY

REACTIONS (3)
  - ABASIA [None]
  - DRUG TOXICITY [None]
  - MUSCLE TWITCHING [None]
